FAERS Safety Report 10068940 (Version 1)
Quarter: 2014Q2

REPORT INFORMATION
  Report Type: Other
  Country: DK (occurrence: CA)
  Receive Date: 20140409
  Receipt Date: 20140409
  Transmission Date: 20141212
  Serious: Yes (Hospitalization)
  Sender: FDA-Public Use
  Company Number: CA-FRI-1000066340

PATIENT
  Age: 48 Year
  Sex: Female

DRUGS (6)
  1. ESCITALOPRAM [Suspect]
     Dosage: OVERDOSE 400 MG
  2. CLONIDINE [Suspect]
     Dosage: OVERDOSE 2.8 MG
  3. PROPRANOLOL [Suspect]
     Dosage: OVERDOSE 1120 MG
  4. LORAZEPAM [Suspect]
     Dosage: OVERDOSE 28 MG
  5. ATORVASTATIN [Suspect]
     Dosage: OVERDOSE 560 MG
  6. QUETIAPINE [Suspect]
     Dosage: OVERDOSE 5600 MG

REACTIONS (3)
  - Blood pressure systolic decreased [Unknown]
  - Coma scale abnormal [Unknown]
  - Overdose [Unknown]
